FAERS Safety Report 18131226 (Version 1)
Quarter: 2020Q3

REPORT INFORMATION
  Report Type: Report from Study
  Country: US (occurrence: US)
  Receive Date: 20200810
  Receipt Date: 20200810
  Transmission Date: 20201103
  Serious: Yes (Hospitalization, Other)
  Sender: FDA-Public Use
  Company Number: US-BAUSCH-BL-2020-022170

PATIENT
  Age: 63 Year
  Sex: Female
  Weight: 71.28 kg

DRUGS (2)
  1. XIFAXAN [Suspect]
     Active Substance: RIFAXIMIN
     Indication: IRRITABLE BOWEL SYNDROME
     Dosage: STARTED POSSIBLY A YEAR AGO.
     Route: 048
     Dates: start: 2019
  2. XIFAXAN [Suspect]
     Active Substance: RIFAXIMIN
     Indication: INFLAMMATORY BOWEL DISEASE

REACTIONS (5)
  - Wrist fracture [Unknown]
  - Upper limb fracture [Unknown]
  - Product use issue [Unknown]
  - Femur fracture [Unknown]
  - Fall [Unknown]

NARRATIVE: CASE EVENT DATE: 20200430
